FAERS Safety Report 13253389 (Version 1)
Quarter: 2017Q1

REPORT INFORMATION
  Report Type: Spontaneous
  Country: US (occurrence: US)
  Receive Date: 20170220
  Receipt Date: 20170220
  Transmission Date: 20170428
  Serious: No
  Sender: FDA-Public Use
  Company Number: US-ACADIA PHARMACEUTICALS INC.-ACA-2016-002167

PATIENT
  Sex: Male

DRUGS (3)
  1. VALIUM [Concomitant]
     Active Substance: DIAZEPAM
     Indication: PRODUCT USED FOR UNKNOWN INDICATION
  2. NUPLAZID [Suspect]
     Active Substance: PIMAVANSERIN TARTRATE
     Indication: TOURETTE^S DISORDER
     Dosage: 85 MG, QD
  3. NUPLAZID [Suspect]
     Active Substance: PIMAVANSERIN TARTRATE
     Dosage: 51 MG, QD

REACTIONS (10)
  - Headache [Unknown]
  - Speech disorder [Unknown]
  - Nausea [Unknown]
  - Off label use [Unknown]
  - Confusional state [Unknown]
  - Obsessive-compulsive disorder [Unknown]
  - Libido disorder [Unknown]
  - Swelling face [Unknown]
  - Appetite disorder [Unknown]
  - Peripheral swelling [Unknown]
